FAERS Safety Report 9238399 (Version 1)
Quarter: 2013Q1

REPORT INFORMATION
  Report Type: Spontaneous
  Country: US (occurrence: None)
  Receive Date: 20121106
  Receipt Date: 20121106
  Transmission Date: 20140127
  Serious: No
  Sender: FDA-Public Use
  Company Number: 1000037155

PATIENT
  Age: 68 Year
  Sex: Female

DRUGS (5)
  1. DALIRESP [Suspect]
     Dosage: 500 UG  (500 MCG, 1 IN 1 D) , ORAL
     Route: 048
     Dates: start: 201206
  2. MUCINEX (GUAFENESIN) (GUAFENESIN) [Concomitant]
  3. THEOPHYLLINE (THEOPHYLLINE) (THEOPHYLLINE) [Concomitant]
  4. SYMBICORT (BUDESONIDE W/ FORMOTEROL FUMARATE) BUDESONIDE W/ FORMOTEROL FUMARATE) [Concomitant]
  5. PREDNISONE (PREDNISONE) (PREDNISONE) [Concomitant]

REACTIONS (4)
  - Stress [None]
  - Tremor [None]
  - Pruritus [None]
  - Feeling abnormal [None]
